FAERS Safety Report 16647525 (Version 2)
Quarter: 2019Q3

REPORT INFORMATION
  Report Type: Spontaneous
  Country: US (occurrence: US)
  Receive Date: 20190730
  Receipt Date: 20190819
  Transmission Date: 20191004
  Serious: No
  Sender: FDA-Public Use
  Company Number: US-PFIZER INC-2019324720

PATIENT
  Age: 65 Year
  Sex: Female
  Weight: 86.18 kg

DRUGS (1)
  1. GABAPENTIN. [Suspect]
     Active Substance: GABAPENTIN
     Dosage: 2700 MG, UNK

REACTIONS (7)
  - Insomnia [Unknown]
  - Gait disturbance [Unknown]
  - Dysstasia [Unknown]
  - Pain in extremity [Unknown]
  - Paraesthesia [Unknown]
  - Musculoskeletal disorder [Unknown]
  - Feeling cold [Unknown]
